FAERS Safety Report 7958982-7 (Version None)
Quarter: 2011Q4

REPORT INFORMATION
  Report Type: 
  Country: None (occurrence: None)
  Receive Date: 20111130
  Receipt Date: 20111114
  Transmission Date: 20120403
  Serious: Yes (Other)
  Sender: FDA-Public Use
  Company Number: 2011P1009735

PATIENT
  Age: 35 Month
  Sex: Female
  Weight: 14.5151 kg

DRUGS (1)
  1. OVIDE [Suspect]
     Indication: LICE INFESTATION
     Dosage: X1;TOP
     Route: 061
     Dates: start: 20111019

REACTIONS (3)
  - APPLICATION SITE BURN [None]
  - SKIN INFECTION [None]
  - BURNS SECOND DEGREE [None]
